FAERS Safety Report 25065128 (Version 1)
Quarter: 2025Q1

REPORT INFORMATION
  Report Type: Report from Study
  Country: FR (occurrence: FR)
  Receive Date: 20250311
  Receipt Date: 20250311
  Transmission Date: 20250408
  Serious: Yes (Other)
  Sender: TAKEDA
  Company Number: FR-TAKEDA-2025TUS024306

PATIENT
  Sex: Male
  Weight: 83 kg

DRUGS (3)
  1. FRUQUINTINIB [Suspect]
     Active Substance: FRUQUINTINIB
     Indication: Colorectal cancer metastatic
  2. FRUQUINTINIB [Suspect]
     Active Substance: FRUQUINTINIB
     Dosage: 5 MILLIGRAM, QD
     Dates: start: 20241112
  3. FRUQUINTINIB [Suspect]
     Active Substance: FRUQUINTINIB
     Dates: start: 20250107, end: 20250303

REACTIONS (25)
  - Colorectal cancer metastatic [Unknown]
  - Thrombocytopenia [Unknown]
  - Drug intolerance [Unknown]
  - Lymphopenia [Unknown]
  - Anaemia [Unknown]
  - Gastrointestinal motility disorder [Unknown]
  - Sacral pain [Unknown]
  - Weight increased [Unknown]
  - Normocytic anaemia [Unknown]
  - C-reactive protein increased [Unknown]
  - Prealbumin increased [Unknown]
  - General physical health deterioration [Unknown]
  - Oedema peripheral [Recovered/Resolved]
  - Gynaecomastia [Recovering/Resolving]
  - Nipple pain [Unknown]
  - Neuralgia [Recovered/Resolved]
  - Burn oesophageal [Recovering/Resolving]
  - Blood creatinine increased [Unknown]
  - Blood thyroid stimulating hormone increased [Unknown]
  - Epistaxis [Unknown]
  - Dysphonia [Recovered/Resolved]
  - Mucosal inflammation [Unknown]
  - Palmar-plantar erythrodysaesthesia syndrome [Unknown]
  - Pain in extremity [Unknown]
  - Weight decreased [Unknown]
